FAERS Safety Report 7390196-4 (Version None)
Quarter: 2011Q2

REPORT INFORMATION
  Report Type: 
  Country: None (occurrence: None)
  Receive Date: 20110401
  Receipt Date: 20110323
  Transmission Date: 20111010
  Serious: Yes (Other)
  Sender: FDA-Public Use
  Company Number: US-ASTRAZENECA-2008UW20748

PATIENT
  Age: 22125 Day
  Sex: Female
  Weight: 92.1 kg

DRUGS (4)
  1. METFORMIN [Concomitant]
  2. CRESTOR [Suspect]
     Indication: BLOOD CHOLESTEROL INCREASED
     Route: 048
  3. DILTIAZEM [Concomitant]
  4. GLIMEPIRIDE [Concomitant]

REACTIONS (5)
  - ARTHRALGIA [None]
  - RASH MACULAR [None]
  - MYALGIA [None]
  - HEPATOCELLULAR INJURY [None]
  - GAIT DISTURBANCE [None]
